FAERS Safety Report 20419433 (Version 1)
Quarter: 2022Q1

REPORT INFORMATION
  Report Type: Other
  Country: PT (occurrence: None)
  Receive Date: 20220203
  Receipt Date: 20220203
  Transmission Date: 20220423
  Serious: Yes (Death, Hospitalization)
  Sender: FDA-Public Use
  Company Number: PT-ROCHE-3015103

PATIENT
  Age: 67 Year
  Sex: Female

DRUGS (18)
  1. TRASTUZUMAB [Suspect]
     Active Substance: TRASTUZUMAB
     Indication: HER2 positive breast cancer
     Route: 058
     Dates: start: 20180919
  2. PERTUZUMAB [Suspect]
     Active Substance: PERTUZUMAB
     Indication: HER2 positive breast cancer
     Route: 042
     Dates: start: 20180919
  3. PACLITAXEL [Suspect]
     Active Substance: PACLITAXEL
     Indication: HER2 positive breast cancer
     Route: 042
     Dates: start: 20180919, end: 20190228
  4. LETROZOLE [Suspect]
     Active Substance: LETROZOLE
     Indication: HER2 positive breast cancer
     Route: 048
     Dates: start: 20190307
  5. BUTYLSCOPOLAMINE BROMIDE [Concomitant]
     Active Substance: BUTYLSCOPOLAMINE BROMIDE
     Dosage: ONGOING = NOT CHECKED
     Dates: start: 20190314, end: 20210810
  6. BISOPROLOL [Concomitant]
     Active Substance: BISOPROLOL
     Dosage: ONGOING = NOT CHECKED
     Dates: start: 20190613, end: 20210810
  7. PERINDOPRIL [Concomitant]
     Active Substance: PERINDOPRIL
     Dosage: ONGOING = NOT CHECKED
     Dates: start: 20190613, end: 20210810
  8. TRAMADOL [Concomitant]
     Active Substance: TRAMADOL
     Dosage: ONGOING = NOT CHECKED
     Dates: end: 20210810
  9. CETIRIZINE [Concomitant]
     Active Substance: CETIRIZINE HYDROCHLORIDE
     Dosage: ONGOING = NOT CHECKED
     Dates: start: 20191029, end: 20210810
  10. CELECOXIB [Concomitant]
     Active Substance: CELECOXIB
     Dosage: ONGOING = NOT CHECKED
     Dates: end: 20210810
  11. RAMIPRIL [Concomitant]
     Active Substance: RAMIPRIL
     Dosage: ONGOING = NOT CHECKED
     Dates: end: 20210810
  12. BETAHISTINE [Concomitant]
     Active Substance: BETAHISTINE
     Dosage: ONGOING = NOT CHECKED
     Dates: end: 20210810
  13. CANDESARTAN [Concomitant]
     Active Substance: CANDESARTAN
     Dosage: ONGOING = NOT CHECKED
     Dates: end: 20210810
  14. INDAPAMIDE [Concomitant]
     Active Substance: INDAPAMIDE
     Dosage: ONGOING = NOT CHECKED
     Dates: end: 20210810
  15. CALCITAB D [Concomitant]
     Dosage: ONGOING = NOT CHECKED
     Dates: start: 20180918, end: 20210810
  16. ZOLEDRONIC ACID [Concomitant]
     Active Substance: ZOLEDRONIC ACID
     Dosage: ONGOING = NOT CHECKED
     Dates: start: 20190307, end: 20210810
  17. ACETAMINOPHEN [Concomitant]
     Active Substance: ACETAMINOPHEN
     Dosage: ONGOING = NOT CHECKED
     Dates: start: 20190313, end: 20210810
  18. METAMIZOLE [Concomitant]
     Active Substance: METAMIZOLE
     Dosage: ONGOING = NOT CHECKED
     Dates: end: 20210810

REACTIONS (1)
  - COVID-19 pneumonia [Fatal]

NARRATIVE: CASE EVENT DATE: 20210801
